FAERS Safety Report 5989070-7 (Version None)
Quarter: 2008Q4

REPORT INFORMATION
  Report Type: 
  Country: None (occurrence: None)
  Receive Date: 20081204
  Receipt Date: 20081118
  Transmission Date: 20090506
  Serious: Yes (Hospitalization)
  Sender: FDA-Public Use
  Company Number: 001#0#2008-00646

PATIENT
  Age: 93 Year
  Sex: Female

DRUGS (3)
  1. ISOSORBIDE DINITRATE [Suspect]
     Indication: ILL-DEFINED DISORDER
     Dosage: 70 CAPSULES, UNCERTAIN INTAKE, ORAL
     Route: 048
     Dates: start: 20081101
  2. LEVOTHYROXINE SODIUM [Suspect]
     Dosage: MAXIMAL 100 TABLETS, UNCERTAIN INTAKE, ORAL
     Route: 048
     Dates: start: 20081101
  3. TORSEMIDE [Suspect]
     Dosage: 10 TABLETS, UNCERTAIN INTAKE,  ORAL
     Route: 048
     Dates: start: 20081101

REACTIONS (6)
  - DISORIENTATION [None]
  - HYPOTENSION [None]
  - INCORRECT DOSE ADMINISTERED [None]
  - SOMNOLENCE [None]
  - SUICIDE ATTEMPT [None]
  - TACHYCARDIA [None]
